FAERS Safety Report 9719308 (Version 1)
Quarter: 2013Q4

REPORT INFORMATION
  Report Type: Spontaneous
  Country: SE (occurrence: SE)
  Receive Date: 20131127
  Receipt Date: 20131127
  Transmission Date: 20140711
  Serious: Yes (Other)
  Sender: FDA-Public Use
  Company Number: PHHY2013SE136693

PATIENT
  Sex: Male

DRUGS (1)
  1. TEGRETOL RETARD [Suspect]
     Indication: EPILEPSY
     Dosage: UNK UKN, UNK

REACTIONS (4)
  - Abnormal behaviour [Unknown]
  - Learning disorder [Unknown]
  - Fall [Unknown]
  - Amnesia [Unknown]
